FAERS Safety Report 15006072 (Version 1)
Quarter: 2018Q2

REPORT INFORMATION
  Report Type: Spontaneous
  Country: US (occurrence: US)
  Receive Date: 20180613
  Receipt Date: 20180613
  Transmission Date: 20180711
  Serious: No
  Sender: FDA-Public Use
  Company Number: US-DUCHESNAY INC.-2049340

PATIENT
  Age: 57 Year
  Sex: Female

DRUGS (6)
  1. OSPHENA [Suspect]
     Active Substance: OSPEMIFENE
     Indication: DYSPAREUNIA
     Route: 048
     Dates: start: 20180601
  2. CIPROFLOXACINE 5MG BID [Concomitant]
  3. LEVOTHYOXINE 25MG [Concomitant]
  4. FLEXERIL TID 5MG [Concomitant]
  5. SLEEP AID UNSPECIFIED 5MG [Concomitant]
  6. ESTRADIOL 0.1MG [Concomitant]
     Active Substance: ESTRADIOL

REACTIONS (4)
  - Eye symptom [Not Recovered/Not Resolved]
  - Vertigo [Not Recovered/Not Resolved]
  - Nausea [Not Recovered/Not Resolved]
  - Vomiting [Not Recovered/Not Resolved]

NARRATIVE: CASE EVENT DATE: 20180611
